FAERS Safety Report 14172704 (Version 1)
Quarter: 2017Q4

REPORT INFORMATION
  Report Type: Spontaneous
  Country: US (occurrence: US)
  Receive Date: 20171109
  Receipt Date: 20171109
  Transmission Date: 20180321
  Serious: Yes (Hospitalization, Other)
  Sender: FDA-Public Use
  Company Number: US-WEST-WARD PHARMACEUTICALS CORP.-US-H14001-17-04263

PATIENT
  Age: 55 Year
  Sex: Female
  Weight: 106 kg

DRUGS (13)
  1. METHOTREXATE. [Suspect]
     Active Substance: METHOTREXATE
     Indication: RHEUMATOID ARTHRITIS
     Route: 048
     Dates: start: 20101116
  2. NAPROXEN. [Suspect]
     Active Substance: NAPROXEN
     Indication: RHEUMATOID ARTHRITIS
     Route: 048
     Dates: start: 20120625, end: 20131023
  3. PIOGLITAZONE. [Concomitant]
     Active Substance: PIOGLITAZONE
     Indication: TYPE 2 DIABETES MELLITUS
     Route: 065
     Dates: start: 2006
  4. HYDROCHLOROTHIAZIDE. [Concomitant]
     Active Substance: HYDROCHLOROTHIAZIDE
     Indication: HYPERTENSION
     Route: 065
     Dates: start: 200901
  5. NEXIUM [Concomitant]
     Active Substance: ESOMEPRAZOLE MAGNESIUM
     Indication: GASTROINTESTINAL DISORDER
     Route: 065
     Dates: start: 20100327
  6. BIOTIN [Concomitant]
     Active Substance: BIOTIN
     Indication: TYPE 2 DIABETES MELLITUS
     Route: 065
     Dates: start: 20120115
  7. EXENATIDE. [Concomitant]
     Active Substance: EXENATIDE
     Indication: TYPE 2 DIABETES MELLITUS
     Route: 065
     Dates: start: 201112
  8. ATENOLOL. [Concomitant]
     Active Substance: ATENOLOL
     Indication: HYPERTENSION
     Route: 065
     Dates: start: 20120317
  9. NAPROXEN. [Suspect]
     Active Substance: NAPROXEN
     Indication: OSTEOARTHRITIS
     Route: 048
     Dates: start: 20100327, end: 20120617
  10. PREDNISONE. [Suspect]
     Active Substance: PREDNISONE
     Indication: PRODUCT USED FOR UNKNOWN INDICATION
     Route: 065
     Dates: start: 20100523
  11. VITAMIN D [Concomitant]
     Active Substance: CHOLECALCIFEROL
     Indication: PROPHYLAXIS
     Route: 065
     Dates: start: 20110701
  12. CYCLOBENZAPRINE. [Concomitant]
     Active Substance: CYCLOBENZAPRINE
     Indication: PAIN IN EXTREMITY
     Route: 065
     Dates: start: 20120317
  13. FOLIC ACID. [Concomitant]
     Active Substance: FOLIC ACID
     Indication: PROPHYLAXIS
     Route: 065
     Dates: start: 20101116

REACTIONS (9)
  - Hepatic steatosis [Unknown]
  - Pneumonia [Recovered/Resolved with Sequelae]
  - Coronary artery disease [Not Recovered/Not Resolved]
  - Intervertebral disc degeneration [Not Recovered/Not Resolved]
  - Dysphagia [Recovered/Resolved]
  - Glaucoma [Not Recovered/Not Resolved]
  - Mitral valve incompetence [Unknown]
  - Tricuspid valve incompetence [Unknown]
  - Hyperlipidaemia [Not Recovered/Not Resolved]

NARRATIVE: CASE EVENT DATE: 2010
